FAERS Safety Report 23240921 (Version 3)
Quarter: 2023Q4

REPORT INFORMATION
  Report Type: Spontaneous
  Country: FR (occurrence: FR)
  Receive Date: 20231129
  Receipt Date: 20231222
  Transmission Date: 20240110
  Serious: Yes (Other)
  Sender: FDA-Public Use
  Company Number: FR-ORGANON-O2311FRA002909

PATIENT
  Sex: Female
  Weight: 80 kg

DRUGS (1)
  1. NEXPLANON [Suspect]
     Active Substance: ETONOGESTREL
     Dosage: 1 IMPLANT, RIGHT ARM (LEFT-HANDED PATIENT)
     Route: 059
     Dates: start: 20220423

REACTIONS (4)
  - Sleeve gastrectomy [Unknown]
  - Abscess [Unknown]
  - Weight decreased [Unknown]
  - Device breakage [Recovered/Resolved]
